FAERS Safety Report 8820138 (Version 1)
Quarter: 2012Q4

REPORT INFORMATION
  Report Type: 
  Country: US (occurrence: US)
  Receive Date: 20121001
  Receipt Date: 20121001
  Transmission Date: 20130627
  Serious: Yes (Hospitalization)
  Sender: FDA-Public Use
  Company Number: US-ROCHE-1131392

PATIENT
  Sex: Male

DRUGS (7)
  1. RITUXAN [Suspect]
     Indication: LYMPHOMA
     Route: 065
     Dates: start: 20000307
  2. RITUXAN [Suspect]
     Route: 065
     Dates: start: 20000314
  3. RITUXAN [Suspect]
     Route: 065
     Dates: start: 20000321
  4. RITUXAN [Suspect]
     Route: 065
     Dates: start: 20000329
  5. RITUXAN [Suspect]
     Route: 065
     Dates: start: 20000404
  6. RITUXAN [Suspect]
     Route: 065
     Dates: start: 20000411
  7. RITUXAN [Suspect]
     Route: 065
     Dates: start: 20000418

REACTIONS (3)
  - Gastrointestinal haemorrhage [Recovered/Resolved]
  - Disease progression [Unknown]
  - Arthralgia [Unknown]
